FAERS Safety Report 9816062 (Version 1)
Quarter: 2014Q1

REPORT INFORMATION
  Report Type: Spontaneous
  Country: IT (occurrence: IT)
  Receive Date: 20140114
  Receipt Date: 20140114
  Transmission Date: 20141002
  Serious: Yes (Other)
  Sender: FDA-Public Use
  Company Number: IT-ACTAVIS-2013-24374

PATIENT
  Age: 60 Year
  Sex: Female

DRUGS (2)
  1. PACLITAXEL (UNKNOWN) [Suspect]
     Indication: OVARIAN CANCER
     Dosage: 320 MG, CYCLICAL
     Route: 042
     Dates: start: 20131104, end: 20131216
  2. CARBOPLATIN TEVA [Suspect]
     Indication: OVARIAN CANCER
     Dosage: 800 MG, CYCLICAL
     Route: 042
     Dates: start: 20131104, end: 20131216

REACTIONS (2)
  - Neutropenia [Recovering/Resolving]
  - Leukopenia [Recovering/Resolving]
